FAERS Safety Report 14370380 (Version 2)
Quarter: 2018Q1

REPORT INFORMATION
  Report Type: Spontaneous
  Country: US (occurrence: US)
  Receive Date: 20180110
  Receipt Date: 20180309
  Transmission Date: 20180509
  Serious: No
  Sender: FDA-Public Use
  Company Number: US-ASTRAZENECA-2017SF26808

PATIENT
  Sex: Female
  Weight: 49.9 kg

DRUGS (6)
  1. SYMBICORT [Suspect]
     Active Substance: BUDESONIDE\FORMOTEROL FUMARATE DIHYDRATE
     Indication: ASTHMA
     Dosage: 80/4.5 MICROGRAMS, ONE PUFF, TWO TIMES A DAY
     Route: 055
  2. SYMBICORT [Suspect]
     Active Substance: BUDESONIDE\FORMOTEROL FUMARATE DIHYDRATE
     Indication: ASTHMA
     Dosage: 80/4.5 MICROGRAMS, TWO PUFFS, TWO TIMES A DAY
     Route: 055
  3. SYMBICORT [Suspect]
     Active Substance: BUDESONIDE\FORMOTEROL FUMARATE DIHYDRATE
     Indication: HYPERSENSITIVITY
     Dosage: 80/4.5 MICROGRAMS, ONE PUFF, TWO TIMES A DAY
     Route: 055
  4. SYMBICORT [Suspect]
     Active Substance: BUDESONIDE\FORMOTEROL FUMARATE DIHYDRATE
     Indication: RESPIRATORY TRACT CONGESTION
     Dosage: 80/4.5 MICROGRAMS, TWO PUFFS, TWO TIMES A DAY
     Route: 055
  5. SYMBICORT [Suspect]
     Active Substance: BUDESONIDE\FORMOTEROL FUMARATE DIHYDRATE
     Indication: RESPIRATORY TRACT CONGESTION
     Dosage: 80/4.5 MICROGRAMS, ONE PUFF, TWO TIMES A DAY
     Route: 055
  6. SYMBICORT [Suspect]
     Active Substance: BUDESONIDE\FORMOTEROL FUMARATE DIHYDRATE
     Indication: HYPERSENSITIVITY
     Dosage: 80/4.5 MICROGRAMS, TWO PUFFS, TWO TIMES A DAY
     Route: 055

REACTIONS (8)
  - Circumstance or information capable of leading to medication error [Unknown]
  - Product quality issue [Unknown]
  - Influenza [Unknown]
  - Heart rate increased [Unknown]
  - Off label use [Unknown]
  - Intentional product misuse [Unknown]
  - Product taste abnormal [Unknown]
  - Product use issue [Unknown]
